FAERS Safety Report 10716147 (Version 1)
Quarter: 2015Q1

REPORT INFORMATION
  Report Type: Spontaneous
  Country: US (occurrence: None)
  Receive Date: 20150115
  Receipt Date: 20150115
  Transmission Date: 20150721
  Serious: Yes (Other)
  Sender: FDA-Public Use
  Company Number: None

PATIENT
  Age: 68 Year
  Sex: Male
  Weight: 69.8 kg

DRUGS (1)
  1. OXYBUTININE [Suspect]
     Active Substance: OXYBUTYNIN\OXYBUTYNIN CHLORIDE
     Indication: DRUG THERAPY
     Route: 048
     Dates: start: 20140910, end: 20140923

REACTIONS (4)
  - Swollen tongue [None]
  - Eye pruritus [None]
  - Obstructive airways disorder [None]
  - Oropharyngeal pain [None]

NARRATIVE: CASE EVENT DATE: 20140923
